FAERS Safety Report 8926147 (Version 1)
Quarter: 2012Q4

REPORT INFORMATION
  Report Type: 
  Country: FR (occurrence: FR)
  Receive Date: 20121126
  Receipt Date: 20121126
  Transmission Date: 20130627
  Serious: Yes (Life-Threatening, Hospitalization)
  Sender: FDA-Public Use
  Company Number: FR-BAYER-2012-120434

PATIENT
  Age: 54 Year
  Sex: Male
  Weight: 69 kg

DRUGS (7)
  1. NEXAVAR [Suspect]
     Indication: CARCINOMA HEPATOCELLULAR
     Dosage: 200 mg, BID
     Route: 048
     Dates: start: 201203
  2. LOVENOX [Concomitant]
  3. INEXIUM [Concomitant]
  4. TARDYFERON [Concomitant]
  5. STILNOX [Concomitant]
  6. LASILIX [Concomitant]
  7. DIFFU K [Concomitant]

REACTIONS (1)
  - Endocarditis enterococcal [None]
